FAERS Safety Report 24555461 (Version 1)
Quarter: 2024Q4

REPORT INFORMATION
  Report Type: Spontaneous
  Country: PL (occurrence: None)
  Receive Date: 20241028
  Receipt Date: 20241028
  Transmission Date: 20250114
  Serious: Yes (Death, Hospitalization)
  Sender: ORION
  Company Number: None

PATIENT
  Age: 64 Year
  Sex: Male
  Weight: 60 kg

DRUGS (1)
  1. METHOTREXATE SODIUM [Suspect]
     Active Substance: METHOTREXATE SODIUM
     Indication: Rheumatoid arthritis
     Dates: end: 20240905

REACTIONS (12)
  - Overdose [Fatal]
  - Inappropriate schedule of product administration [Fatal]
  - Toxicity to various agents [Fatal]
  - Cachexia [Fatal]
  - Mobility decreased [Fatal]
  - Anaemia [Fatal]
  - Melaena [Fatal]
  - Mouth haemorrhage [Fatal]
  - Agranulocytosis [Fatal]
  - Thrombocytopenia [Fatal]
  - Neutropenia [Unknown]
  - Asthenia [Unknown]

NARRATIVE: CASE EVENT DATE: 20240101
